FAERS Safety Report 7907720-2 (Version None)
Quarter: 2011Q4

REPORT INFORMATION
  Report Type: 
  Country: None (occurrence: None)
  Receive Date: 20111110
  Receipt Date: 20111028
  Transmission Date: 20120403
  Serious: Yes (Hospitalization, Other)
  Sender: FDA-Public Use
  Company Number: FR-ELI_LILLY_AND_COMPANY-FR201110007791

PATIENT
  Age: 46 Year
  Sex: Male

DRUGS (2)
  1. DEPAKOTE [Concomitant]
  2. OLANZAPINE [Suspect]
     Dosage: 300 MG, OTHER
     Route: 030
     Dates: start: 20110401

REACTIONS (3)
  - BLOOD PROLACTIN INCREASED [None]
  - INFARCTION [None]
  - GYNAECOMASTIA [None]
